FAERS Safety Report 9428974 (Version 2)
Quarter: 2013Q3

REPORT INFORMATION
  Report Type: Spontaneous
  Country: JP (occurrence: JP)
  Receive Date: 20130730
  Receipt Date: 20130807
  Transmission Date: 20140515
  Serious: Yes (Hospitalization, Other)
  Sender: FDA-Public Use
  Company Number: JP-ROCHE-1241060

PATIENT
  Age: 65 Year
  Sex: Male
  Weight: 40 kg

DRUGS (7)
  1. AVASTIN [Suspect]
     Indication: RECTAL CANCER METASTATIC
     Route: 041
     Dates: start: 20130513
  2. LEVOFOLINATE [Suspect]
     Indication: RECTAL CANCER METASTATIC
     Route: 041
     Dates: start: 20130513
  3. ELPLAT [Suspect]
     Indication: RECTAL CANCER METASTATIC
     Route: 041
     Dates: start: 20130513
  4. 5-FU [Suspect]
     Indication: RECTAL CANCER METASTATIC
     Route: 040
     Dates: start: 20130513
  5. 5-FU [Suspect]
     Indication: RECTAL CANCER METASTATIC
     Route: 041
     Dates: start: 20130513
  6. DECADRON [Concomitant]
     Indication: PROPHYLAXIS
     Dosage: DOSAGE IS UNCERTAIN.
     Route: 042
     Dates: start: 20130513
  7. ALOXI [Concomitant]
     Indication: PROPHYLAXIS
     Dosage: DOSAGE IS UNCERTAIN.
     Route: 042
     Dates: start: 20130513

REACTIONS (5)
  - White blood cell count decreased [Recovered/Resolved]
  - Pneumonia aspiration [Not Recovered/Not Resolved]
  - Gastric ulcer [Recovering/Resolving]
  - Gastric perforation [Recovered/Resolved with Sequelae]
  - Dysphagia [Unknown]
